FAERS Safety Report 8163439-7 (Version None)
Quarter: 2012Q1

REPORT INFORMATION
  Report Type: 
  Country: None (occurrence: None)
  Receive Date: 20120221
  Receipt Date: 20120213
  Transmission Date: 20120608
  Serious: Yes (Death)
  Sender: FDA-Public Use
  Company Number: DKLU1076588

PATIENT
  Age: 1 Day
  Sex: Male

DRUGS (1)
  1. INDOCIN [Suspect]
     Indication: PATENT DUCTUS ARTERIOSUS
     Dosage: 0.6 MG/KG MILLIGRAM(S)/KILOGRAM, CONTINUOUS INFUSION, INTRAVENOUS DRIP
     Route: 041
     Dates: start: 20060321, end: 20060323

REACTIONS (1)
  - NECROTISING COLITIS [None]
